FAERS Safety Report 6216773-1 (Version None)
Quarter: 2009Q2

REPORT INFORMATION
  Report Type: 
  Country: None (occurrence: None)
  Receive Date: 20090605
  Receipt Date: 20090525
  Transmission Date: 20091009
  Serious: Yes (Hospitalization)
  Sender: FDA-Public Use
  Company Number: SE-ELI_LILLY_AND_COMPANY-SE200906000717

PATIENT
  Age: 78 Year
  Sex: Male

DRUGS (4)
  1. BYETTA [Suspect]
     Indication: DIABETES MELLITUS
     Dosage: 5 UG, 2/D
     Route: 058
     Dates: start: 20090225, end: 20090228
  2. TROMBYL [Concomitant]
     Dosage: 75 MG, UNKNOWN
     Route: 065
  3. IMDUR [Concomitant]
     Dosage: 30 MG, UNKNOWN
     Route: 065
  4. TRIATEC COMP [Concomitant]
     Dosage: 5MG/25MG, UNKNOWN
     Route: 065

REACTIONS (3)
  - COLD SWEAT [None]
  - DIZZINESS [None]
  - SYNCOPE [None]
